FAERS Safety Report 24359531 (Version 2)
Quarter: 2025Q1

REPORT INFORMATION
  Report Type: Spontaneous
  Country: US (occurrence: US)
  Receive Date: 20240924
  Receipt Date: 20250307
  Transmission Date: 20250409
  Serious: No
  Sender: SANOFI AVENTIS
  Company Number: US-SA-2024SA269249

PATIENT
  Age: 15 Year
  Sex: Female

DRUGS (1)
  1. DUPIXENT [Suspect]
     Active Substance: DUPILUMAB
     Indication: Eosinophilic oesophagitis
     Dosage: 300 MG, QW
     Route: 058
     Dates: start: 20240808

REACTIONS (11)
  - Nausea [Recovered/Resolved]
  - Vomiting [Recovered/Resolved]
  - Product dose omission issue [Recovered/Resolved]
  - Reflux gastritis [Recovered/Resolved]
  - Condition aggravated [Recovered/Resolved]
  - Retching [Recovered/Resolved]
  - Condition aggravated [Recovered/Resolved]
  - Constipation [Not Recovered/Not Resolved]
  - Inappropriate schedule of product administration [Not Recovered/Not Resolved]
  - Injection site pain [Recovering/Resolving]
  - Injection site bruising [Unknown]

NARRATIVE: CASE EVENT DATE: 20240101
